FAERS Safety Report 8300082-0 (Version None)
Quarter: 2012Q2

REPORT INFORMATION
  Report Type: 
  Country: None (occurrence: None)
  Receive Date: 20120420
  Receipt Date: 20120417
  Transmission Date: 20120825
  Serious: No
  Sender: FDA-Public Use
  Company Number: US-PFIZER INC-2012061504

PATIENT
  Sex: Female
  Weight: 128.8 kg

DRUGS (3)
  1. TYLENOL (CAPLET) [Concomitant]
     Indication: ARTHRITIS
     Dosage: UNK
  2. CELEBREX [Suspect]
     Indication: ARTHRITIS
     Dosage: 200 MG, 1X/DAY
     Route: 048
     Dates: start: 20100101, end: 20120201
  3. CELEBREX [Suspect]
     Dosage: UNK

REACTIONS (1)
  - PAIN [None]
